FAERS Safety Report 4273198-6 (Version None)
Quarter: 2004Q1

REPORT INFORMATION
  Report Type: 
  Country: None (occurrence: None)
  Receive Date: 20040116
  Receipt Date: 20040108
  Transmission Date: 20041129
  Serious: Yes (Other)
  Sender: FDA-Public Use
  Company Number: PHBS2004BE00762

PATIENT
  Sex: Female

DRUGS (2)
  1. ZOMETA [Suspect]
     Indication: BREAST CANCER
     Route: 065
  2. CHEMOTHERAPEUTICS,OTHER [Concomitant]

REACTIONS (1)
  - NEPHRITIS INTERSTITIAL [None]
